FAERS Safety Report 7029911-8 (Version None)
Quarter: 2010Q4

REPORT INFORMATION
  Report Type: 
  Country: None (occurrence: None)
  Receive Date: 20101006
  Receipt Date: 20100928
  Transmission Date: 20110411
  Serious: Yes (Other)
  Sender: FDA-Public Use
  Company Number: US-BAYER-201035591NA

PATIENT
  Age: 25 Year
  Sex: Female

DRUGS (1)
  1. MIRENA [Suspect]
     Indication: CONTRACEPTION
     Dosage: CONTINUOUS ADMINISTRATION
     Route: 015
     Dates: start: 20100803, end: 20100916

REACTIONS (11)
  - AMNESIA [None]
  - ANXIETY [None]
  - FEELING ABNORMAL [None]
  - GENITAL HAEMORRHAGE [None]
  - HEADACHE [None]
  - LOSS OF LIBIDO [None]
  - MENSTRUATION DELAYED [None]
  - VAGINITIS BACTERIAL [None]
  - VULVOVAGINAL DISCOMFORT [None]
  - VULVOVAGINAL ERYTHEMA [None]
  - VULVOVAGINAL PRURITUS [None]
